FAERS Safety Report 17426109 (Version 1)
Quarter: 2020Q1

REPORT INFORMATION
  Report Type: Spontaneous
  Country: US (occurrence: US)
  Receive Date: 20200217
  Receipt Date: 20200217
  Transmission Date: 20200409
  Serious: Yes (Death)
  Sender: FDA-Public Use
  Company Number: US-MEITHEAL PHARMACEUTICALS-2020MHL00002

PATIENT

DRUGS (1)
  1. CISATRACURIUM BESYLATE. [Suspect]
     Active Substance: CISATRACURIUM BESYLATE
     Indication: ACUTE RESPIRATORY DISTRESS SYNDROME
     Route: 042

REACTIONS (2)
  - Shock [Fatal]
  - Atrioventricular block [Fatal]
